FAERS Safety Report 11307608 (Version 1)
Quarter: 2015Q3

REPORT INFORMATION
  Report Type: Spontaneous
  Country: US (occurrence: US)
  Receive Date: 20150723
  Receipt Date: 20150723
  Transmission Date: 20151125
  Serious: No
  Sender: FDA-Public Use
  Company Number: US-NOVEN PHARMACEUTICALS, INC.-US2015000126

PATIENT
  Age: 54 Year
  Sex: Female

DRUGS (4)
  1. AMBIEN [Concomitant]
     Active Substance: ZOLPIDEM TARTRATE
     Indication: SLEEP DISORDER
  2. SYNTHROID [Concomitant]
     Active Substance: LEVOTHYROXINE SODIUM
     Indication: THYROID DISORDER
     Dosage: 25 MG, QD
  3. BRISDELLE [Suspect]
     Active Substance: PAROXETINE MESYLATE
     Indication: HOT FLUSH
     Dosage: 7.5 MG, QD
     Route: 048
     Dates: start: 20150330
  4. BRISDELLE [Suspect]
     Active Substance: PAROXETINE MESYLATE
     Indication: NIGHT SWEATS

REACTIONS (2)
  - Inappropriate schedule of drug administration [Unknown]
  - No adverse event [Unknown]

NARRATIVE: CASE EVENT DATE: 20150330
